FAERS Safety Report 6407314-4 (Version None)
Quarter: 2009Q4

REPORT INFORMATION
  Report Type: 
  Country: None (occurrence: None)
  Receive Date: 20091020
  Receipt Date: 20091007
  Transmission Date: 20100525
  Serious: Yes (Life-Threatening)
  Sender: FDA-Public Use
  Company Number: B0581282A

PATIENT
  Age: 37 Year
  Sex: Female
  Weight: 102 kg

DRUGS (5)
  1. RANITIDINE [Suspect]
     Indication: PROPHYLAXIS
     Route: 042
     Dates: start: 20090608, end: 20090608
  2. CITALOPRAM HYDROBROMIDE [Concomitant]
     Route: 048
  3. NOVORAPID [Concomitant]
     Indication: GESTATIONAL DIABETES
     Route: 058
  4. LANTUS [Concomitant]
     Indication: GESTATIONAL DIABETES
     Route: 058
  5. HYDROCORTISONE [Concomitant]
     Indication: PSORIASIS
     Route: 061

REACTIONS (4)
  - DYSPHONIA [None]
  - OBSTRUCTIVE AIRWAYS DISORDER [None]
  - RHINORRHOEA [None]
  - SNEEZING [None]
